FAERS Safety Report 14352691 (Version 2)
Quarter: 2018Q3

REPORT INFORMATION
  Report Type: Spontaneous
  Country: US (occurrence: US)
  Receive Date: 20180104
  Receipt Date: 20180807
  Transmission Date: 20181010
  Serious: Yes (Hospitalization)
  Sender: FDA-Public Use
  Company Number: US-PFIZER INC-2017549717

PATIENT
  Age: 68 Year
  Sex: Female
  Weight: 68 kg

DRUGS (3)
  1. XELJANZ XR [Suspect]
     Active Substance: TOFACITINIB CITRATE
     Indication: RHEUMATOID ARTHRITIS
     Dosage: 11 MG, 1X/DAY
     Route: 048
  2. XELJANZ XR [Suspect]
     Active Substance: TOFACITINIB CITRATE
     Dosage: 11 MG, 1X/DAY
  3. VITAMIN D3 [Concomitant]
     Active Substance: CHOLECALCIFEROL
     Indication: BONE DISORDER
     Dosage: 2000 IU, 1X/DAY
     Route: 048

REACTIONS (5)
  - Cough [Recovered/Resolved]
  - Productive cough [Recovered/Resolved]
  - Vertigo [Recovered/Resolved]
  - Rhinorrhoea [Recovered/Resolved]
  - Dizziness [Recovered/Resolved]
